FAERS Safety Report 9693032 (Version 1)
Quarter: 2013Q4

REPORT INFORMATION
  Report Type: Spontaneous
  Country: US (occurrence: None)
  Receive Date: 20131115
  Receipt Date: 20131115
  Transmission Date: 20140711
  Serious: Yes (Other)
  Sender: FDA-Public Use
  Company Number: None

PATIENT
  Age: 80 Year
  Sex: Female
  Weight: 61.24 kg

DRUGS (5)
  1. ALENDRONATE SODIUM [Suspect]
     Indication: OSTEOPOROSIS
     Dosage: 70 MG  1  WEEKLY  BY MOUTH
     Route: 048
     Dates: start: 2009, end: 2013
  2. LOVASTATIN [Concomitant]
  3. DETROL [Concomitant]
  4. PROBIOTIC [Concomitant]
  5. MEGA RED JOINT CARE [Concomitant]

REACTIONS (1)
  - Syncope [None]
